FAERS Safety Report 15646313 (Version 1)
Quarter: 2018Q4

REPORT INFORMATION
  Report Type: Spontaneous
  Country: US (occurrence: US)
  Receive Date: 20181122
  Receipt Date: 20181122
  Transmission Date: 20190205
  Serious: No
  Sender: FDA-Public Use
  Company Number: US-ALVOGEN-2017-ALVOGEN-093949

PATIENT
  Age: 85 Year
  Sex: Male

DRUGS (3)
  1. FOSINOPRIL [Suspect]
     Active Substance: FOSINOPRIL
     Indication: ESSENTIAL HYPERTENSION
  2. AMLODIPINE [Suspect]
     Active Substance: AMLODIPINE BESYLATE
     Indication: ESSENTIAL HYPERTENSION
  3. LISINOPRIL. [Suspect]
     Active Substance: LISINOPRIL
     Indication: ESSENTIAL HYPERTENSION

REACTIONS (1)
  - Tinea cruris [Unknown]
